FAERS Safety Report 8547125-7 (Version None)
Quarter: 2012Q3

REPORT INFORMATION
  Report Type: 
  Country: None (occurrence: None)
  Receive Date: 20120727
  Receipt Date: 20120406
  Transmission Date: 20120928
  Serious: No
  Sender: FDA-Public Use
  Company Number: US-ASTRAZENECA-2012SE11323

PATIENT
  Age: 56 Year
  Sex: Male
  Weight: 72.6 kg

DRUGS (6)
  1. SEROQUEL [Suspect]
     Dosage: 50 MG 2-3 TIMES A DAY
     Route: 048
  2. MIRTAZAPINE [Concomitant]
     Indication: SLEEP DISORDER
  3. SEROQUEL [Suspect]
     Indication: SLEEP DISORDER
     Route: 048
  4. NEXIUM [Suspect]
     Indication: GASTROOESOPHAGEAL REFLUX DISEASE
     Route: 048
  5. LORAZEPAM [Concomitant]
  6. SEROQUEL [Suspect]
     Route: 048

REACTIONS (10)
  - MALAISE [None]
  - FEELING ABNORMAL [None]
  - INSOMNIA [None]
  - OROPHARYNGEAL SWELLING [None]
  - MENTAL DISORDER [None]
  - FATIGUE [None]
  - INTENTIONAL DRUG MISUSE [None]
  - OFF LABEL USE [None]
  - OROPHARYNGEAL PAIN [None]
  - THINKING ABNORMAL [None]
